FAERS Safety Report 22114256 (Version 1)
Quarter: 2023Q1

REPORT INFORMATION
  Report Type: Spontaneous
  Country: BR (occurrence: BR)
  Receive Date: 20230320
  Receipt Date: 20230320
  Transmission Date: 20230418
  Serious: Yes (Hospitalization, Other)
  Sender: FDA-Public Use
  Company Number: BR-CIPLA (EU) LIMITED-2023BR01038

PATIENT

DRUGS (1)
  1. CETIRIZINE [Suspect]
     Active Substance: CETIRIZINE HYDROCHLORIDE
     Indication: Product used for unknown indication
     Dosage: 10 MILLIGRAM, BID, (FILM-COATED TABLET)
     Route: 065
     Dates: start: 20220207

REACTIONS (10)
  - Near death experience [Recovered/Resolved]
  - Poor peripheral circulation [Unknown]
  - Limb discomfort [Unknown]
  - Dysphagia [Unknown]
  - Eye swelling [Unknown]
  - Swelling face [Unknown]
  - Laryngeal oedema [Unknown]
  - Peripheral swelling [Unknown]
  - Dyspnoea [Unknown]
  - Hypersensitivity [Unknown]

NARRATIVE: CASE EVENT DATE: 20220207
